FAERS Safety Report 5299858-6 (Version None)
Quarter: 2007Q2

REPORT INFORMATION
  Report Type: 
  Country: None (occurrence: None)
  Receive Date: 20070417
  Receipt Date: 20070405
  Transmission Date: 20071010
  Serious: Yes (Other)
  Sender: FDA-Public Use
  Company Number: US-PFIZER INC-2007028303

PATIENT
  Sex: Female
  Weight: 46.3 kg

DRUGS (2)
  1. ZITHROMAX [Suspect]
     Indication: SINUSITIS
     Dates: start: 20070319, end: 20070329
  2. CONTRACEPTIVE, UNSPECIFIED [Concomitant]

REACTIONS (6)
  - ASTHENOPIA [None]
  - FACIAL PALSY [None]
  - HYPOAESTHESIA FACIAL [None]
  - LACRIMATION INCREASED [None]
  - MUSCULAR WEAKNESS [None]
  - PARAESTHESIA [None]
